FAERS Safety Report 14290114 (Version 1)
Quarter: 2017Q4

REPORT INFORMATION
  Report Type: Spontaneous
  Country: US (occurrence: US)
  Receive Date: 20171215
  Receipt Date: 20171215
  Transmission Date: 20180321
  Serious: No
  Sender: FDA-Public Use
  Company Number: US-TEVA-726362USA

PATIENT
  Age: 90 Year
  Sex: Female

DRUGS (14)
  1. OXYBUTYNIN. [Suspect]
     Active Substance: OXYBUTYNIN CHLORIDE
     Dosage: 10 MILLIGRAM DAILY;
     Dates: start: 20161204
  2. MYRBETRIQ [Suspect]
     Active Substance: MIRABEGRON
     Dosage: 50 MILLIGRAM DAILY;
     Route: 048
     Dates: start: 20160218
  3. MYRBETRIQ [Suspect]
     Active Substance: MIRABEGRON
     Dosage: 50 MILLIGRAM DAILY;
     Route: 048
     Dates: start: 20161014, end: 20161204
  4. MYRBETRIQ [Suspect]
     Active Substance: MIRABEGRON
     Route: 048
  5. MYRBETRIQ [Suspect]
     Active Substance: MIRABEGRON
     Dosage: 50 MILLIGRAM DAILY;
  6. SPIRONOLACTONE. [Concomitant]
     Active Substance: SPIRONOLACTONE
  7. MYRBETRIQ [Suspect]
     Active Substance: MIRABEGRON
     Dosage: 50 MILLIGRAM DAILY;
     Route: 048
     Dates: start: 20160914
  8. VITAMINS [Concomitant]
     Active Substance: VITAMINS
  9. MYRBETRIQ [Suspect]
     Active Substance: MIRABEGRON
     Indication: INCONTINENCE
     Dosage: 50 MILLIGRAM DAILY;
     Route: 065
     Dates: start: 20170419
  10. SYNTHROID [Concomitant]
     Active Substance: LEVOTHYROXINE SODIUM
     Indication: THYROID DISORDER
     Dates: start: 2016
  11. OXYBUTYNIN. [Suspect]
     Active Substance: OXYBUTYNIN CHLORIDE
     Indication: INCONTINENCE
     Route: 065
     Dates: start: 201605, end: 2016
  12. TROSPIUM [Suspect]
     Active Substance: TROSPIUM
     Indication: INCONTINENCE
     Route: 065
     Dates: start: 201605
  13. DETROL [Suspect]
     Active Substance: TOLTERODINE TARTRATE
     Indication: INCONTINENCE
     Dates: start: 201605
  14. ESTRACE [Suspect]
     Active Substance: ESTRADIOL
     Indication: INCONTINENCE
     Dosage: THRICE WEEKLY
     Route: 067
     Dates: start: 201605

REACTIONS (3)
  - Thyroid disorder [Unknown]
  - Somnolence [Unknown]
  - Anaemia [Unknown]

NARRATIVE: CASE EVENT DATE: 2016
